FAERS Safety Report 6440192-6 (Version None)
Quarter: 2009Q4

REPORT INFORMATION
  Report Type: 
  Country: None (occurrence: None)
  Receive Date: 20091113
  Receipt Date: 20091002
  Transmission Date: 20100525
  Serious: No
  Sender: FDA-Public Use
  Company Number: A0800425A

PATIENT
  Age: 69 Year
  Sex: Male

DRUGS (12)
  1. COREG [Suspect]
     Indication: HYPERTENSION
     Dosage: 12.5MG PER DAY
     Route: 048
  2. COREG [Suspect]
     Dosage: 25MG TWICE PER DAY
     Route: 048
  3. COREG [Suspect]
     Route: 048
  4. COREG CR [Suspect]
     Indication: HYPERTENSION
     Dosage: 40MG FOUR TIMES PER DAY
     Route: 048
  5. COLCHICINE [Concomitant]
  6. ALLOPURINOL [Concomitant]
  7. DIOVAN [Concomitant]
  8. ISOSORBIDE [Concomitant]
  9. TORSEMIDE [Concomitant]
  10. ASPIRIN [Concomitant]
  11. FOLIC ACID [Concomitant]
  12. NITROGLYCERIN [Concomitant]

REACTIONS (8)
  - DISCOMFORT [None]
  - DRUG DISPENSING ERROR [None]
  - DRUG INEFFECTIVE [None]
  - FEELING COLD [None]
  - MEDICATION RESIDUE [None]
  - PALPITATIONS [None]
  - PRODUCT QUALITY ISSUE [None]
  - SLUGGISHNESS [None]
